FAERS Safety Report 22354178 (Version 1)
Quarter: 2023Q2

REPORT INFORMATION
  Report Type: Spontaneous
  Country: US (occurrence: None)
  Receive Date: 20230522
  Receipt Date: 20230522
  Transmission Date: 20230722
  Serious: Yes (Other)
  Sender: FDA-Public Use
  Company Number: None

PATIENT
  Age: 59 Year
  Sex: Male

DRUGS (1)
  1. CABENUVA [Suspect]
     Active Substance: CABOTEGRAVIR\RILPIVIRINE
     Indication: HIV infection
     Dosage: OTHER QUANTITY : 600-90MG;?FREQUENCY : AS DIRECTED;?
     Route: 030
     Dates: start: 20220406, end: 20230516

REACTIONS (2)
  - Influenza like illness [None]
  - Therapy interrupted [None]

NARRATIVE: CASE EVENT DATE: 20230516
